FAERS Safety Report 8603507-6 (Version None)
Quarter: 2012Q3

REPORT INFORMATION
  Report Type: 
  Country: None (occurrence: None)
  Receive Date: 20120817
  Receipt Date: 20120808
  Transmission Date: 20120928
  Serious: Yes (Other)
  Sender: FDA-Public Use
  Company Number: US-ASTRAZENECA-2008UW27999

PATIENT
  Age: 42 Year
  Sex: Male
  Weight: 81.6 kg

DRUGS (8)
  1. SEROQUEL XR [Suspect]
     Route: 048
  2. METHADONE HYDROCHLORIDE [Concomitant]
  3. SEROQUEL XR [Suspect]
     Indication: MENTAL DISORDER
     Route: 048
  4. SEROQUEL XR [Suspect]
     Route: 048
  5. SEROQUEL XR [Suspect]
     Indication: SLEEP DISORDER
     Route: 048
  6. SEROQUEL XR [Suspect]
     Dosage: TAKES 200-250 MG PER NIGHT
     Route: 048
  7. SEROQUEL XR [Suspect]
     Dosage: TAKES 200-250 MG PER NIGHT
     Route: 048
  8. CLONAZEPAM [Concomitant]

REACTIONS (17)
  - VOMITING [None]
  - INSOMNIA [None]
  - DRUG DOSE OMISSION [None]
  - LOSS OF CONSCIOUSNESS [None]
  - PETIT MAL EPILEPSY [None]
  - HANGOVER [None]
  - INTENTIONAL DRUG MISUSE [None]
  - DRUG WITHDRAWAL SYNDROME [None]
  - FEELING ABNORMAL [None]
  - CONVULSION [None]
  - MIGRAINE [None]
  - HEADACHE [None]
  - PROCEDURAL PAIN [None]
  - AMNESIA [None]
  - DELIRIUM [None]
  - DRUG EFFECT PROLONGED [None]
  - OFF LABEL USE [None]
